FAERS Safety Report 8069994-X (Version None)
Quarter: 2012Q1

REPORT INFORMATION
  Report Type: 
  Country: None (occurrence: None)
  Receive Date: 20120125
  Receipt Date: 20120118
  Transmission Date: 20120608
  Serious: No
  Sender: FDA-Public Use
  Company Number: US-BAYER-2011-090679

PATIENT
  Age: 69 Year
  Sex: Female
  Weight: 83 kg

DRUGS (14)
  1. PLAVIX [Concomitant]
  2. MELOXICAM [Concomitant]
  3. ALEVE (CAPLET) [Suspect]
     Indication: ARTHRITIS
     Dosage: 3 DF, QD
     Route: 048
     Dates: start: 20110714
  4. BENAZEPRIL W/HYDROCHLOROTHIAZIDE [Concomitant]
  5. CALCIUM [Concomitant]
  6. ALEVE (CAPLET) [Suspect]
     Dosage: UNK
     Route: 048
     Dates: start: 20110101
  7. PRAVASTATIN [Concomitant]
  8. VITAMIN B-12 [Concomitant]
  9. FOLIC ACID [Concomitant]
  10. THIOTHIXENE [Concomitant]
  11. PANTOPRAZOLE [Concomitant]
  12. ATIVAN [Concomitant]
  13. MAGNESIUM SULFATE [Concomitant]
  14. MULTI-VITAMINS [Concomitant]

REACTIONS (1)
  - NO ADVERSE EVENT [None]
